FAERS Safety Report 25668076 (Version 1)
Quarter: 2025Q3

REPORT INFORMATION
  Report Type: Spontaneous
  Country: EU (occurrence: EU)
  Receive Date: 20250812
  Receipt Date: 20250812
  Transmission Date: 20251020
  Serious: Yes (Hospitalization)
  Sender: TEVA
  Company Number: None

PATIENT
  Age: 20 Year
  Sex: Female
  Weight: 65 kg

DRUGS (1)
  1. LAMOTRIGINE [Suspect]
     Active Substance: LAMOTRIGINE
     Indication: Epilepsy
     Route: 048
     Dates: start: 202201, end: 20220218

REACTIONS (3)
  - Rash macular [Recovering/Resolving]
  - Rash [Recovering/Resolving]
  - Body temperature abnormal [Recovering/Resolving]

NARRATIVE: CASE EVENT DATE: 20220210
